FAERS Safety Report 10584627 (Version 1)
Quarter: 2014Q4

REPORT INFORMATION
  Report Type: Spontaneous
  Country: SE (occurrence: SE)
  Receive Date: 20141114
  Receipt Date: 20141114
  Transmission Date: 20150529
  Serious: Yes (Hospitalization)
  Sender: FDA-Public Use
  Company Number: SE-TEVA-522110ISR

PATIENT
  Age: 46 Year
  Sex: Male

DRUGS (3)
  1. OXASCAND [Suspect]
     Active Substance: OXAZEPAM
     Dosage: ABOUT 3 TABLETS OF UNKNOWN STRENGTH
     Dates: start: 20130921
  2. STILNOCT [Suspect]
     Active Substance: ZOLPIDEM TARTRATE
     Dosage: ABOUT 3 TABLETS OF UNKNOWN STRENGTH
     Dates: start: 20130921
  3. PANOCOD [Concomitant]
     Active Substance: ACETAMINOPHEN\CODEINE PHOSPHATE

REACTIONS (1)
  - Toxicity to various agents [Recovered/Resolved]

NARRATIVE: CASE EVENT DATE: 20130921
